FAERS Safety Report 6944720-3 (Version None)
Quarter: 2010Q3

REPORT INFORMATION
  Report Type: 
  Country: None (occurrence: None)
  Receive Date: 20100827
  Receipt Date: 20100825
  Transmission Date: 20110219
  Serious: Yes (Other)
  Sender: FDA-Public Use
  Company Number: JP-PFIZER INC-2010107048

PATIENT
  Age: 47 Year
  Sex: Female

DRUGS (5)
  1. CELECOX [Suspect]
     Dosage: 200 MG,
     Route: 048
  2. JUVELA [Concomitant]
     Dosage: UNK
  3. METHYCOBAL [Concomitant]
     Dosage: UNK
  4. MYONAL [Concomitant]
     Dosage: UNK
  5. MUCOSTA [Concomitant]
     Dosage: UNK

REACTIONS (1)
  - HALLUCINATION [None]
